FAERS Safety Report 10066401 (Version 2)
Quarter: 2014Q2

REPORT INFORMATION
  Report Type: Spontaneous
  Country: US (occurrence: US)
  Receive Date: 20140408
  Receipt Date: 20140418
  Transmission Date: 20141212
  Serious: Yes (Other)
  Sender: FDA-Public Use
  Company Number: US-TEVA-474111USA

PATIENT
  Sex: Male
  Weight: 86.26 kg

DRUGS (1)
  1. GLYBURIDE [Suspect]
     Indication: DIABETES MELLITUS

REACTIONS (6)
  - Knee arthroplasty [Unknown]
  - Colon operation [Unknown]
  - Thyroid disorder [Unknown]
  - Hypoglycaemia [Unknown]
  - Incorrect dose administered [Unknown]
  - Drug administered to patient of inappropriate age [Unknown]
